FAERS Safety Report 17887155 (Version 1)
Quarter: 2020Q2

REPORT INFORMATION
  Report Type: Spontaneous
  Country: IN (occurrence: IN)
  Receive Date: 20200612
  Receipt Date: 20200612
  Transmission Date: 20200714
  Serious: Yes (Hospitalization, Other)
  Sender: FDA-Public Use
  Company Number: IN-SUN PHARMACEUTICAL INDUSTRIES LTD-2019R1-214495

PATIENT
  Age: 8 Year
  Sex: Male

DRUGS (1)
  1. PHENYTOIN. [Suspect]
     Active Substance: PHENYTOIN
     Indication: SEIZURE
     Dosage: 6 MILLIGRAM/KILOGRAM, DAILY
     Route: 048

REACTIONS (4)
  - Generalised tonic-clonic seizure [Recovering/Resolving]
  - Depressed level of consciousness [Recovering/Resolving]
  - Hemiparesis [Recovering/Resolving]
  - Toxicity to various agents [Unknown]
